FAERS Safety Report 5157975-5 (Version None)
Quarter: 2006Q4

REPORT INFORMATION
  Report Type: 
  Country: None (occurrence: None)
  Receive Date: 20061127
  Receipt Date: 20061114
  Transmission Date: 20070319
  Serious: Yes (Hospitalization)
  Sender: FDA-Public Use
  Company Number: US-BOEHRINGER INGELHEIM GMBH, GERMANY-2006-DE-06031GD

PATIENT
  Age: 50 Year
  Sex: Female

DRUGS (8)
  1. TRAZODONE HCL [Suspect]
     Indication: SLEEP DISORDER
  2. METHADONE HYDROCHLORIDE [Suspect]
     Indication: DRUG DEPENDENCE
  3. ALPRAZOLAM [Suspect]
     Indication: ANXIETY
  4. COCAINE HYDROCHLORIDE [Suspect]
  5. ABACAVIR [Concomitant]
     Indication: HIV INFECTION
  6. LAMIVUDINE [Concomitant]
     Indication: HIV INFECTION
  7. ZIDOVUDINE [Concomitant]
     Indication: HIV INFECTION
  8. TENOFOVIR [Concomitant]
     Indication: HIV INFECTION

REACTIONS (11)
  - BLOOD MAGNESIUM DECREASED [None]
  - BLOOD POTASSIUM DECREASED [None]
  - DRUG ABUSER [None]
  - DRUG INTERACTION [None]
  - ELECTROCARDIOGRAM QT PROLONGED [None]
  - HAEMODYNAMIC INSTABILITY [None]
  - HEART RATE DECREASED [None]
  - HYPERHIDROSIS [None]
  - LOSS OF CONSCIOUSNESS [None]
  - TORSADE DE POINTES [None]
  - TREMOR [None]
